FAERS Safety Report 10207011 (Version 1)
Quarter: 2014Q2

REPORT INFORMATION
  Report Type: Report from Study
  Country: FI (occurrence: FI)
  Receive Date: 20140530
  Receipt Date: 20140530
  Transmission Date: 20141212
  Serious: Yes (Death)
  Sender: FDA-Public Use
  Company Number: FI-PFIZER INC-2014147257

PATIENT
  Age: 26 Year
  Sex: Male

DRUGS (7)
  1. PREGABALIN [Suspect]
     Dosage: UNK
  2. TEMAZEPAM [Suspect]
     Dosage: UNK
  3. BUPRENORPHINE [Suspect]
     Dosage: UNK
  4. NORDAZEPAM [Concomitant]
     Dosage: UNK
  5. DIAZEPAM [Concomitant]
     Dosage: UNK
  6. OXAZEPAM [Concomitant]
     Dosage: UNK
  7. TETRAHYDROCANNABINOL [Concomitant]
     Dosage: UNK

REACTIONS (2)
  - Drug abuse [Fatal]
  - Toxicity to various agents [Fatal]
